FAERS Safety Report 9627983 (Version 2)
Quarter: 2013Q4

REPORT INFORMATION
  Report Type: Report from Study
  Country: US (occurrence: US)
  Receive Date: 20131016
  Receipt Date: 20131016
  Transmission Date: 20140711
  Serious: Yes (Hospitalization)
  Sender: FDA-Public Use
  Company Number: US-ABBVIE-13P-163-1130317-00

PATIENT
  Age: 40 Year
  Sex: Female

DRUGS (2)
  1. HUMIRA [Suspect]
     Indication: COLITIS ULCERATIVE
     Dates: start: 20130706, end: 201308
  2. HUMIRA [Suspect]
     Dates: start: 201308

REACTIONS (8)
  - Malaise [Unknown]
  - Gastrointestinal infection [Not Recovered/Not Resolved]
  - Headache [Not Recovered/Not Resolved]
  - Arthralgia [Not Recovered/Not Resolved]
  - Colitis ulcerative [Recovered/Resolved]
  - Incorrect dose administered [Unknown]
  - Chalazion [Unknown]
  - Colitis ulcerative [Unknown]
